FAERS Safety Report 14081664 (Version 1)
Quarter: 2017Q4

REPORT INFORMATION
  Report Type: Spontaneous
  Country: US (occurrence: None)
  Receive Date: 20171013
  Receipt Date: 20171013
  Transmission Date: 20180321
  Serious: Yes (Hospitalization)
  Sender: FDA-Public Use
  Company Number: None

PATIENT
  Age: 16 Year
  Sex: Male
  Weight: 84.5 kg

DRUGS (6)
  1. CYCLOPHOSPHAMIDE. [Suspect]
     Active Substance: CYCLOPHOSPHAMIDE
     Dates: end: 20170801
  2. VINCRISTINE SULFATE. [Suspect]
     Active Substance: VINCRISTINE SULFATE
     Dates: end: 20170816
  3. CYTARABINE. [Suspect]
     Active Substance: CYTARABINE
     Dates: start: 20170818
  4. MERCAPTOPURINE. [Suspect]
     Active Substance: MERCAPTOPURINE
     Dates: end: 20170815
  5. ONCASPAR [Suspect]
     Active Substance: PEGASPARGASE
     Dosage: 10175 UNIT
     Dates: end: 20170816
  6. METHOTREXATE. [Suspect]
     Active Substance: METHOTREXATE
     Dates: end: 20170816

REACTIONS (8)
  - Mucosal inflammation [None]
  - Pneumonia klebsiella [None]
  - Muscular weakness [None]
  - Oral pain [None]
  - Febrile neutropenia [None]
  - Haemoglobin decreased [None]
  - Thrombocytosis [None]
  - Diarrhoea [None]

NARRATIVE: CASE EVENT DATE: 20170818
